FAERS Safety Report 19987878 (Version 1)
Quarter: 2021Q4

REPORT INFORMATION
  Report Type: Spontaneous
  Country: US (occurrence: US)
  Receive Date: 20211023
  Receipt Date: 20211023
  Transmission Date: 20220303
  Serious: No
  Sender: FDA-Public Use
  Company Number: US-LUPIN PHARMACEUTICALS INC.-2021-20052

PATIENT
  Age: 35 Year
  Sex: Male

DRUGS (2)
  1. TRIAMCINOLONE [Suspect]
     Active Substance: TRIAMCINOLONE
     Indication: Groin pain
     Dosage: 1 MILLILITER OF 40 MG TRIAMCINOLONE INSTILLED)
     Route: 065
  2. BUPIVACAINE [Concomitant]
     Active Substance: BUPIVACAINE
     Indication: Transversus abdominis plane block
     Dosage: 4 MILLILITER OF BUPIVACAINE 0.5% (INSTILLED)
     Route: 065

REACTIONS (1)
  - Lipoatrophy [Recovered/Resolved with Sequelae]
